FAERS Safety Report 8975257 (Version 1)
Quarter: 2012Q4

REPORT INFORMATION
  Report Type: 
  Country: CA (occurrence: CA)
  Receive Date: 20121219
  Receipt Date: 20121219
  Transmission Date: 20130627
  Serious: Yes (Other)
  Sender: FDA-Public Use
  Company Number: PHHY2012CA117301

PATIENT
  Sex: Female

DRUGS (2)
  1. ACLASTA [Suspect]
     Indication: OSTEOPOROSIS
     Dosage: UNK
     Route: 042
     Dates: start: 20100421
  2. ACLASTA [Suspect]
     Dosage: UNK
     Route: 042
     Dates: start: 20110422

REACTIONS (2)
  - Fall [Unknown]
  - Dizziness [Unknown]
